FAERS Safety Report 15813214 (Version 1)
Quarter: 2019Q1

REPORT INFORMATION
  Report Type: Spontaneous
  Country: US (occurrence: US)
  Receive Date: 20190111
  Receipt Date: 20190111
  Transmission Date: 20190417
  Serious: No
  Sender: FDA-Public Use
  Company Number: US-SA-2019SA007244

PATIENT
  Age: 75 Year
  Sex: Male

DRUGS (1)
  1. ENOXAPARIN SODIUM - WINTHROP [Suspect]
     Active Substance: ENOXAPARIN SODIUM
     Dosage: 40 MG, QD

REACTIONS (4)
  - Oedema peripheral [Not Recovered/Not Resolved]
  - Skin irritation [Not Recovered/Not Resolved]
  - Hip deformity [Not Recovered/Not Resolved]
  - Confusional state [Not Recovered/Not Resolved]
